FAERS Safety Report 4716371-2 (Version None)
Quarter: 2005Q3

REPORT INFORMATION
  Report Type: 
  Country: None (occurrence: None)
  Receive Date: 20050713
  Receipt Date: 20050630
  Transmission Date: 20060218
  Serious: Yes (Other)
  Sender: FDA-Public Use
  Company Number: 2005077217

PATIENT
  Age: 86 Year
  Sex: Female
  Weight: 77.1115 kg

DRUGS (11)
  1. BEXTRA [Suspect]
     Indication: ARTHRITIS
     Dosage: 10 MG (10 MG, 1 IN 1 D), ORAL
     Route: 048
     Dates: start: 20030101
  2. CELEBREX [Suspect]
     Indication: ARTHRITIS
     Dosage: ORAL
     Route: 048
  3. GLUCOTROL [Suspect]
     Indication: DIABETES MELLITUS
     Dosage: ORAL
     Route: 048
  4. GLUCOPHAGE [Suspect]
     Indication: ILL-DEFINED DISORDER
     Dosage: ORAL
     Route: 048
  5. ACETYLSALICYLIC ACID SRT [Concomitant]
  6. NITRO PATCH (GLYCERYL TRINITRATE) [Concomitant]
  7. ACTOS [Concomitant]
  8. NITROGLYCERIN [Concomitant]
  9. AMITRIPTYLINE HCL [Concomitant]
  10. PLAVIX [Concomitant]
  11. EVISTA [Concomitant]

REACTIONS (16)
  - ALOPECIA [None]
  - ASTHENIA [None]
  - BLOOD GLUCOSE ABNORMAL [None]
  - CHEST PAIN [None]
  - DIARRHOEA [None]
  - FALL [None]
  - FOOT FRACTURE [None]
  - HIP FRACTURE [None]
  - LABORATORY TEST ABNORMAL [None]
  - PAIN IN EXTREMITY [None]
  - RASH [None]
  - RENAL DISORDER [None]
  - SKIN IRRITATION [None]
  - SKIN ULCER [None]
  - THERAPY NON-RESPONDER [None]
  - WEIGHT INCREASED [None]
